FAERS Safety Report 25677593 (Version 1)
Quarter: 2025Q3

REPORT INFORMATION
  Report Type: Spontaneous
  Country: EU (occurrence: EU)
  Receive Date: 20250813
  Receipt Date: 20250813
  Transmission Date: 20251021
  Serious: Yes (Other)
  Sender: MYLAN
  Company Number: EU-AMGEN-DEUSP2025144637

PATIENT
  Age: 72 Year
  Sex: Male

DRUGS (8)
  1. LENALIDOMIDE [Suspect]
     Active Substance: LENALIDOMIDE
     Indication: Plasma cell myeloma
  2. LENALIDOMIDE [Suspect]
     Active Substance: LENALIDOMIDE
  3. KYPROLIS [Suspect]
     Active Substance: CARFILZOMIB
     Indication: Plasma cell myeloma
  4. KYPROLIS [Suspect]
     Active Substance: CARFILZOMIB
  5. KYPROLIS [Suspect]
     Active Substance: CARFILZOMIB
  6. ISATUXIMAB [Suspect]
     Active Substance: ISATUXIMAB
     Indication: Plasma cell myeloma
  7. ISATUXIMAB [Suspect]
     Active Substance: ISATUXIMAB
  8. DEXAMETHASONE [Suspect]
     Active Substance: DEXAMETHASONE
     Indication: Plasma cell myeloma

REACTIONS (2)
  - Haemorrhage intracranial [Unknown]
  - Off label use [Unknown]

NARRATIVE: CASE EVENT DATE: 20240601
